FAERS Safety Report 6627218-1 (Version None)
Quarter: 2010Q1

REPORT INFORMATION
  Report Type: 
  Country: None (occurrence: None)
  Receive Date: 20100311
  Receipt Date: 20100304
  Transmission Date: 20100710
  Serious: Yes (Other)
  Sender: FDA-Public Use
  Company Number: GB-TEVA-214205ISR

PATIENT

DRUGS (2)
  1. ETOPOSIDE [Suspect]
     Indication: METASTASES TO MENINGES
  2. TOPOTECAN [Suspect]
     Indication: METASTASES TO MENINGES

REACTIONS (1)
  - RENAL FAILURE ACUTE [None]
